FAERS Safety Report 10559519 (Version 1)
Quarter: 2014Q4

REPORT INFORMATION
  Report Type: Report from Study
  Country: US (occurrence: US)
  Receive Date: 20141103
  Receipt Date: 20141103
  Transmission Date: 20150529
  Serious: Yes (Other)
  Sender: FDA-Public Use
  Company Number: PHEH2014US021218

PATIENT
  Sex: Male

DRUGS (1)
  1. GILENYA [Suspect]
     Active Substance: FINGOLIMOD HYDROCHLORIDE
     Indication: MULTIPLE SCLEROSIS
     Dosage: 0.5 MG, QD
     Route: 048

REACTIONS (21)
  - Pain [Unknown]
  - Arthralgia [Unknown]
  - Cough [Unknown]
  - Constipation [Unknown]
  - Stress [Unknown]
  - Spinal column injury [Unknown]
  - Vision blurred [Unknown]
  - Ligament sprain [Unknown]
  - Hypersensitivity [Unknown]
  - Rash [Unknown]
  - Bladder dysfunction [Unknown]
  - Deafness [Unknown]
  - Pollakiuria [Unknown]
  - Joint swelling [Unknown]
  - Weight decreased [Unknown]
  - Multiple fractures [Unknown]
  - Peripheral swelling [Unknown]
  - Snoring [Unknown]
  - Balance disorder [Unknown]
  - Dyspnoea [Unknown]
  - Drug ineffective [Unknown]
